FAERS Safety Report 12404248 (Version 2)
Quarter: 2016Q2

REPORT INFORMATION
  Report Type: Spontaneous
  Country: BR (occurrence: BR)
  Receive Date: 20160525
  Receipt Date: 20160606
  Transmission Date: 20160815
  Serious: Yes (Other)
  Sender: FDA-Public Use
  Company Number: BR-PFIZER INC-2016271874

PATIENT
  Sex: Male

DRUGS (1)
  1. PRISTIQ EXTENDED-RELEASE [Suspect]
     Active Substance: DESVENLAFAXINE SUCCINATE
     Dosage: ONCE A DAY, IN THE MORNING
     Route: 048
     Dates: start: 2011

REACTIONS (17)
  - Shock [Unknown]
  - Dizziness [Unknown]
  - Nausea [Unknown]
  - Feeling of despair [Unknown]
  - Vomiting [Unknown]
  - Mood altered [Unknown]
  - Emotional disorder [Unknown]
  - Dysstasia [Unknown]
  - Malaise [Unknown]
  - Depressed mood [Unknown]
  - Insomnia [Unknown]
  - Crying [Unknown]
  - Drug withdrawal syndrome [Unknown]
  - Diarrhoea [Unknown]
  - Blood pressure abnormal [Unknown]
  - Nightmare [Unknown]
  - Tremor [Unknown]
